FAERS Safety Report 7701009-2 (Version None)
Quarter: 2011Q3

REPORT INFORMATION
  Report Type: 
  Country: None (occurrence: None)
  Receive Date: 20110822
  Receipt Date: 20110810
  Transmission Date: 20111222
  Serious: Yes (Other)
  Sender: FDA-Public Use
  Company Number: ZA-JNJFOC-20110806735

PATIENT
  Sex: Female
  Weight: 49 kg

DRUGS (2)
  1. CORTISONE ACETATE [Concomitant]
     Indication: PREMEDICATION
  2. REVELLEX [Suspect]
     Indication: CROHN'S DISEASE
     Route: 042

REACTIONS (2)
  - INFUSION RELATED REACTION [None]
  - CYANOSIS [None]
